FAERS Safety Report 6831740-2 (Version None)
Quarter: 2010Q3

REPORT INFORMATION
  Report Type: 
  Country: None (occurrence: None)
  Receive Date: 20100712
  Receipt Date: 20100702
  Transmission Date: 20110219
  Serious: Yes (Hospitalization)
  Sender: FDA-Public Use
  Company Number: FR-MILLENNIUM PHARMACEUTICALS, INC.-2010-02365

PATIENT

DRUGS (9)
  1. VELCADE [Suspect]
     Indication: MULTIPLE MYELOMA
     Dosage: 1.3 MG/M2, CYCLIC
     Route: 042
     Dates: start: 20091211, end: 20100325
  2. VELCADE [Suspect]
     Dosage: UNK
     Dates: start: 20100416
  3. DEXAMETHASONE ACETATE [Suspect]
     Indication: MULTIPLE MYELOMA
     Dosage: 20 MG, UNK
     Route: 048
     Dates: start: 20091211, end: 20100325
  4. INEXIUM                            /01479302/ [Concomitant]
     Dosage: 40 MG, UNK
     Route: 048
  5. CARDENSIEL [Concomitant]
     Dosage: 5 MG, UNK
     Route: 048
  6. FLUINDIONE [Concomitant]
     Dosage: 20 MG, BID
     Route: 048
  7. LASILIX                            /00032601/ [Concomitant]
     Dosage: 500 MG, QD
     Route: 048
  8. TAVANIC [Concomitant]
     Dosage: 500 MG, QD
     Route: 048
  9. XANAX [Concomitant]
     Dosage: 0.25 MG, UNK
     Route: 048

REACTIONS (1)
  - CEREBELLAR SYNDROME [None]
